FAERS Safety Report 15991313 (Version 1)
Quarter: 2019Q1

REPORT INFORMATION
  Report Type: Spontaneous
  Country: ES (occurrence: ES)
  Receive Date: 20190221
  Receipt Date: 20190221
  Transmission Date: 20190418
  Serious: Yes (Death, Hospitalization)
  Sender: FDA-Public Use
  Company Number: ES-PFIZER INC-2019072256

PATIENT
  Age: 73 Year
  Sex: Male

DRUGS (10)
  1. LISINOPRIL RANBAXY [LISINOPRIL] [Concomitant]
     Indication: HYPERTENSION
     Dosage: UNK
     Route: 048
     Dates: start: 20140501
  2. FORMOTEROL [Concomitant]
     Active Substance: FORMOTEROL
     Dosage: UNK
     Route: 048
     Dates: start: 20170201
  3. XALKORI [Suspect]
     Active Substance: CRIZOTINIB
     Indication: NON-SMALL CELL LUNG CANCER
     Dosage: 250 MG, 1X/DAY
     Route: 048
     Dates: start: 20180318, end: 20180326
  4. METFORMIN [Concomitant]
     Active Substance: METFORMIN HYDROCHLORIDE
     Indication: DIABETES MELLITUS
     Dosage: UNK
     Route: 048
     Dates: start: 20170404
  5. LORAZEPAM KERN PHARMA [Concomitant]
     Dosage: UNK
     Route: 048
     Dates: start: 20110101
  6. AMLODIPINO NORMON [Concomitant]
     Active Substance: AMLODIPINE BESYLATE
     Indication: HYPERTENSION
     Dosage: UNK
     Route: 048
     Dates: start: 20140521
  7. CITALOPRAM NORMON [Concomitant]
     Indication: DEPRESSION
     Dosage: UNK
     Route: 048
     Dates: start: 20120701
  8. OMEPRAZOL PENSA [OMEPRAZOLE] [Concomitant]
     Indication: PROPHYLAXIS AGAINST GASTROINTESTINAL ULCER
     Dosage: UNK
     Route: 048
     Dates: start: 20071001
  9. FUROSEMIDA KERN PHARMA [Concomitant]
     Dosage: UNK
     Route: 048
     Dates: start: 20170724
  10. EMCONCOR [Concomitant]
     Active Substance: BISOPROLOL FUMARATE
     Indication: ATRIAL FIBRILLATION
     Dosage: UNK
     Route: 048
     Dates: start: 20170101

REACTIONS (2)
  - Thrombocytopenia [Recovered/Resolved]
  - Multiple organ dysfunction syndrome [Fatal]

NARRATIVE: CASE EVENT DATE: 20180318
